FAERS Safety Report 20678286 (Version 3)
Quarter: 2022Q2

REPORT INFORMATION
  Report Type: Spontaneous
  Country: US (occurrence: US)
  Receive Date: 20220406
  Receipt Date: 20220518
  Transmission Date: 20220721
  Serious: Yes (Hospitalization)
  Sender: FDA-Public Use
  Company Number: US-HORIZON THERAPEUTICS-HZN-2021-002159

PATIENT

DRUGS (2)
  1. VIMOVO [Suspect]
     Active Substance: ESOMEPRAZOLE MAGNESIUM\NAPROXEN
     Indication: Osteoarthritis
     Dosage: 1 DOSAGE FORM, BID (500MG/20MG, 1 ORALLY TWICE A DAY AS NEEDED)
     Route: 048
  2. NAPROXEN [Suspect]
     Active Substance: NAPROXEN
     Indication: Product used for unknown indication
     Route: 065

REACTIONS (16)
  - Gallbladder disorder [Unknown]
  - Anxiety [Unknown]
  - Cholelithiasis [Unknown]
  - Illness [Unknown]
  - Bone disorder [Unknown]
  - Quality of life decreased [Unknown]
  - Abdominal distension [Unknown]
  - Pain [Unknown]
  - Gait disturbance [Unknown]
  - Dyspepsia [Unknown]
  - Nausea [Recovering/Resolving]
  - Vomiting [Unknown]
  - COVID-19 [Unknown]
  - Arthritis [Unknown]
  - Sick relative [Unknown]
  - Pain in extremity [Unknown]
